FAERS Safety Report 5595694-1 (Version None)
Quarter: 2008Q1

REPORT INFORMATION
  Report Type: 
  Country: None (occurrence: None)
  Receive Date: 20080118
  Receipt Date: 20080115
  Transmission Date: 20080703
  Serious: Yes (Life-Threatening, Hospitalization)
  Sender: FDA-Public Use
  Company Number: PHHO2007FR15868

PATIENT
  Age: 58 Year
  Sex: Male
  Weight: 83 kg

DRUGS (7)
  1. IMATINIB [Suspect]
     Indication: ACUTE LYMPHOCYTIC LEUKAEMIA
     Dosage: 400 MG, BID
     Route: 048
     Dates: start: 20070806
  2. NOVOLOG MIX 70/30 [Concomitant]
     Indication: DIABETES MELLITUS
  3. VALACYCLOVIR [Concomitant]
     Indication: PROPHYLAXIS
     Dates: start: 20070815, end: 20070817
  4. NEXIUM [Concomitant]
     Indication: PROPHYLAXIS
     Dates: start: 20070815, end: 20070817
  5. METFORMIN HCL [Concomitant]
     Indication: DIABETES MELLITUS
     Dates: start: 20070730, end: 20070817
  6. MTX [Suspect]
     Indication: ACUTE LYMPHOCYTIC LEUKAEMIA
     Dosage: 2G/D
     Route: 042
     Dates: start: 20070806, end: 20070806
  7. ARACYTINE [Suspect]
     Indication: ACUTE LYMPHOCYTIC LEUKAEMIA
     Dosage: 3GX2/D
     Route: 042
     Dates: start: 20070807, end: 20070808

REACTIONS (7)
  - AGRANULOCYTOSIS [None]
  - APLASIA [None]
  - ESCHERICHIA SEPSIS [None]
  - HYPOTENSION [None]
  - PYREXIA [None]
  - RENAL FAILURE [None]
  - SEPTIC SHOCK [None]
